FAERS Safety Report 7226197-6 (Version None)
Quarter: 2011Q1

REPORT INFORMATION
  Report Type: 
  Country: None (occurrence: None)
  Receive Date: 20110114
  Receipt Date: 20101217
  Transmission Date: 20110831
  Serious: Yes (Other)
  Sender: FDA-Public Use
  Company Number: PHHY2010JP83782

PATIENT
  Age: 81 Year
  Sex: Male

DRUGS (6)
  1. ZOMETA [Suspect]
     Dosage: 4 MG, UNK
     Route: 042
     Dates: start: 20081229, end: 20090824
  2. ZOMETA [Suspect]
     Dosage: 4 MG/ 5 ML
     Route: 042
     Dates: end: 20090928
  3. MELPHALAN [Concomitant]
  4. PREDNISOLONE [Concomitant]
  5. NSAID'S [Concomitant]
  6. MINOCYCLINE HCL [Concomitant]

REACTIONS (5)
  - PRIMARY SEQUESTRUM [None]
  - DENTAL FISTULA [None]
  - PAIN IN JAW [None]
  - BONE DISORDER [None]
  - OSTEONECROSIS OF JAW [None]
